FAERS Safety Report 19111912 (Version 2)
Quarter: 2021Q2

REPORT INFORMATION
  Report Type: Spontaneous
  Country: BR (occurrence: BR)
  Receive Date: 20210408
  Receipt Date: 20210518
  Transmission Date: 20210717
  Serious: Yes (Death, Other)
  Sender: FDA-Public Use
  Company Number: BR-BAYER-2021-118232

PATIENT
  Age: 58 Year
  Sex: Male

DRUGS (2)
  1. STIVARGA [Suspect]
     Active Substance: REGORAFENIB
     Indication: METASTASES TO LIVER
     Dosage: 120 MG, QD
     Route: 048
     Dates: end: 201806
  2. STIVARGA [Suspect]
     Active Substance: REGORAFENIB
     Indication: ADENOCARCINOMA OF COLON
     Dosage: 40 MG, QD
     Route: 048
     Dates: start: 201801

REACTIONS (4)
  - Diarrhoea [None]
  - Adenocarcinoma of colon [Fatal]
  - Asthenia [None]
  - Off label use [None]

NARRATIVE: CASE EVENT DATE: 201801
